FAERS Safety Report 24008817 (Version 1)
Quarter: 2024Q2

REPORT INFORMATION
  Report Type: Spontaneous
  Country: RU (occurrence: RU)
  Receive Date: 20240625
  Receipt Date: 20240625
  Transmission Date: 20240716
  Serious: Yes (Death, Life-Threatening)
  Sender: FDA-Public Use
  Company Number: RU-STRIDES ARCOLAB LIMITED-2024SP007290

PATIENT
  Age: 2 Decade
  Sex: Male

DRUGS (14)
  1. MYCOPHENOLATE MOFETIL [Suspect]
     Active Substance: MYCOPHENOLATE MOFETIL
     Indication: Chronic myeloid leukaemia
     Dosage: UNK
     Route: 065
  2. MYCOPHENOLATE MOFETIL [Suspect]
     Active Substance: MYCOPHENOLATE MOFETIL
     Indication: Prophylaxis against graft versus host disease
     Dosage: UNK
     Route: 065
  3. TACROLIMUS [Suspect]
     Active Substance: TACROLIMUS
     Indication: Prophylaxis against graft versus host disease
     Dosage: UNK
     Route: 065
  4. ETOPOSIDE [Suspect]
     Active Substance: ETOPOSIDE
     Indication: Chronic myeloid leukaemia
     Dosage: UNK
     Route: 065
  5. INFLIXIMAB [Suspect]
     Active Substance: INFLIXIMAB
     Indication: Chronic myeloid leukaemia
     Dosage: UNK
     Route: 065
  6. ALEMTUZUMAB [Suspect]
     Active Substance: ALEMTUZUMAB
     Indication: Chronic myeloid leukaemia
     Dosage: UNK
     Route: 065
  7. CYTARABINE [Concomitant]
     Active Substance: CYTARABINE
     Indication: Chronic myeloid leukaemia
     Dosage: UNK
     Route: 065
  8. DAUNORUBICIN [Concomitant]
     Active Substance: DAUNORUBICIN
     Indication: Chronic myeloid leukaemia
     Dosage: UNK
     Route: 065
  9. IMATINIB [Concomitant]
     Active Substance: IMATINIB
     Indication: Chronic myeloid leukaemia
     Dosage: 400 MILLIGRAM, QD
     Route: 065
  10. DASATINIB [Concomitant]
     Active Substance: DASATINIB
     Indication: Chronic myeloid leukaemia
     Dosage: 100 MILLIGRAM, QD
     Route: 065
  11. CYCLOPHOSPHAMIDE [Concomitant]
     Active Substance: CYCLOPHOSPHAMIDE
     Indication: Prophylaxis against transplant rejection
     Dosage: 120 MILLIGRAM/KILOGRAM
     Route: 065
  12. CYCLOPHOSPHAMIDE [Concomitant]
     Active Substance: CYCLOPHOSPHAMIDE
     Indication: Bone marrow conditioning regimen
  13. BUSULFAN [Concomitant]
     Active Substance: BUSULFAN
     Indication: Bone marrow conditioning regimen
     Dosage: UNK
     Route: 065
  14. THYMOCYTE IMMUNE GLOBULIN NOS [Concomitant]
     Active Substance: THYMOCYTE IMMUNE GLOBULIN NOS
     Indication: Chronic myeloid leukaemia
     Dosage: UNK
     Route: 065

REACTIONS (3)
  - Acute graft versus host disease [Fatal]
  - Drug ineffective [Fatal]
  - Off label use [Unknown]
